FAERS Safety Report 10072118 (Version 1)
Quarter: 2014Q2

REPORT INFORMATION
  Report Type: Report from Study
  Country: US (occurrence: US)
  Receive Date: 20140411
  Receipt Date: 20140411
  Transmission Date: 20141212
  Serious: Yes (Hospitalization)
  Sender: FDA-Public Use
  Company Number: US-ROCHE-1367160

PATIENT
  Sex: Female
  Weight: 55.84 kg

DRUGS (24)
  1. VALCYTE [Suspect]
     Indication: RENAL TRANSPLANT
     Route: 048
  2. CELLCEPT [Suspect]
     Indication: PRODUCT USED FOR UNKNOWN INDICATION
     Route: 048
  3. CALCITRIOL [Suspect]
     Indication: PRODUCT USED FOR UNKNOWN INDICATION
     Route: 048
  4. MESALAMINE [Concomitant]
     Route: 048
  5. OFLOXACIN [Concomitant]
     Route: 065
  6. PRAVASTATIN [Concomitant]
     Route: 048
  7. PROGRAF [Concomitant]
     Route: 048
  8. VANCOMYCIN [Concomitant]
     Route: 065
  9. FLAGYL [Concomitant]
     Route: 065
  10. CEFEPIME [Concomitant]
     Route: 065
  11. PRAVACHOL [Concomitant]
     Route: 065
  12. ATENOLOL [Concomitant]
     Route: 048
  13. LIALDA [Concomitant]
     Dosage: EVERY DAY WITH A MEAL
     Route: 048
  14. LEVOFLOXACIN [Concomitant]
     Route: 065
  15. AMLODIPINE [Concomitant]
     Route: 048
  16. CEPHALEXIN [Concomitant]
     Route: 048
  17. EVISTA [Concomitant]
     Route: 048
  18. METRONIDAZOLE [Concomitant]
     Route: 048
  19. PREDNISONE [Concomitant]
     Route: 065
  20. BRIMONIDINE [Concomitant]
     Route: 047
  21. LEVAQUIN [Concomitant]
     Route: 065
  22. DAPTOMYCIN [Concomitant]
     Route: 065
  23. LOSARTAN [Concomitant]
     Route: 048
  24. LACTOBACILLUS ACIDOPHILUS [Concomitant]
     Route: 048

REACTIONS (12)
  - Asthenia [Unknown]
  - Gastroenteritis Escherichia coli [Unknown]
  - Bacteraemia [Unknown]
  - Pneumonia [Unknown]
  - Colitis [Unknown]
  - Nausea [Unknown]
  - Renal atrophy [Unknown]
  - Skin ulcer [Unknown]
  - Oedema [Unknown]
  - Fatigue [Unknown]
  - Malaise [Unknown]
  - Oedema due to cardiac disease [Unknown]
